FAERS Safety Report 18018140 (Version 1)
Quarter: 2020Q3

REPORT INFORMATION
  Report Type: Spontaneous
  Country: ID (occurrence: ID)
  Receive Date: 20200714
  Receipt Date: 20200714
  Transmission Date: 20201103
  Serious: Yes (Other)
  Sender: FDA-Public Use
  Company Number: ID-SUN PHARMACEUTICAL INDUSTRIES LTD-2020RR-253484

PATIENT
  Age: 40 Year
  Sex: Female

DRUGS (16)
  1. BLEOMYCIN [Suspect]
     Active Substance: BLEOMYCIN SULFATE
     Indication: HODGKIN^S DISEASE
     Dosage: 10 OLD UNITS ON DAYS 1 AND 15, 4 CYCLES
     Route: 065
  2. IFOSFAMIDE. [Suspect]
     Active Substance: IFOSFAMIDE
     Indication: NEOPLASM RECURRENCE
     Dosage: 1700 MILLIGRAM/SQ. METER, ON DAYS 1 AND 2, 7 CYCLES
     Route: 065
  3. DOXORUBICIN [Suspect]
     Active Substance: DOXORUBICIN
     Indication: HODGKIN^S DISEASE
     Dosage: ON DAYS 1 AND 15, 4 CYCLES
     Route: 065
  4. IFOSFAMIDE. [Suspect]
     Active Substance: IFOSFAMIDE
     Dosage: 1700 MILLIGRAM/SQ. METER, ON DAYS 1 AND 2
     Route: 065
     Dates: start: 201510, end: 201601
  5. MESNA. [Suspect]
     Active Substance: MESNA
     Dosage: 1700 MILLIGRAM/SQ. METER
     Route: 065
     Dates: start: 201510, end: 201601
  6. MESNA. [Suspect]
     Active Substance: MESNA
     Dosage: 1700 MILLIGRAM/SQ. METER
     Route: 065
  7. PREDNISONE. [Suspect]
     Active Substance: PREDNISONE
     Indication: NEOPLASM RECURRENCE
     Dosage: 12?8?0 ON DAYS 1?4
     Route: 065
  8. GEMCITABINE. [Suspect]
     Active Substance: GEMCITABINE
     Indication: NEOPLASM RECURRENCE
     Dosage: 600 MILLIGRAM/SQ. METER, 4 CYCLES
     Route: 065
  9. VINORELBINE [Suspect]
     Active Substance: VINORELBINE TARTRATE
     Indication: NEOPLASM RECURRENCE
     Dosage: 20 MILLIGRAM/SQ. METER
     Route: 065
  10. ETOPOSIDE. [Suspect]
     Active Substance: ETOPOSIDE
     Indication: NEOPLASM RECURRENCE
     Dosage: 100 MILLIGRAM/SQ. METER, ON DAY 1 AND 2, 7 CYCLES
     Route: 065
  11. VINBLASTINE [Suspect]
     Active Substance: VINBLASTINE
     Indication: HODGKIN^S DISEASE
     Dosage: 6 MILLIGRAM/SQ. METER, ON DAYS 1 AND 15, 4 CYCLES
     Route: 065
  12. DACARBAZINE. [Suspect]
     Active Substance: DACARBAZINE
     Indication: HODGKIN^S DISEASE
     Dosage: 375 MILLIGRAM/SQ. METER, ON DAYS 1 AND 15, 4 CYCLES
     Route: 065
  13. MESNA. [Suspect]
     Active Substance: MESNA
     Indication: NEOPLASM RECURRENCE
     Dosage: 1700 MILLIGRAM/SQ. METER, 7 CYCLES
     Route: 065
  14. GEMCITABINE. [Suspect]
     Active Substance: GEMCITABINE
     Dosage: 600 MILLIGRAM/SQ. METER, 2 CYCLES
     Route: 065
  15. CARBOPLATIN. [Suspect]
     Active Substance: CARBOPLATIN
     Indication: NEOPLASM RECURRENCE
     Dosage: 4 AUC ON DAYS 1 AND 2, 7 CYCLES
     Route: 065
  16. IFOSFAMIDE. [Suspect]
     Active Substance: IFOSFAMIDE
     Dosage: 1700 MILLIGRAM/SQ. METER ON DAYS 1 AND 2
     Route: 065

REACTIONS (9)
  - Treatment noncompliance [Unknown]
  - Tension headache [Recovering/Resolving]
  - Disease recurrence [Unknown]
  - Disease recurrence [Unknown]
  - Petechiae [Recovering/Resolving]
  - Disease recurrence [Unknown]
  - Oedema [Recovering/Resolving]
  - Hypotension [Recovering/Resolving]
  - Therapeutic product effect incomplete [Unknown]

NARRATIVE: CASE EVENT DATE: 201403
